FAERS Safety Report 9530342 (Version 1)
Quarter: 2013Q3

REPORT INFORMATION
  Report Type: Spontaneous
  Country: US (occurrence: US)
  Receive Date: 20130917
  Receipt Date: 20130917
  Transmission Date: 20140515
  Serious: Yes (Hospitalization)
  Sender: FDA-Public Use
  Company Number: US-MYLANLABS-2013S1020293

PATIENT
  Age: 50 Year
  Sex: Female

DRUGS (3)
  1. LAMOTRIGINE [Suspect]
     Indication: MAJOR DEPRESSION
     Route: 065
  2. CYCLOBENZAPRINE [Interacting]
     Indication: VIRAL INFECTION
     Route: 065
  3. ESCITALOPRAM [Concomitant]
     Indication: MAJOR DEPRESSION
     Dosage: 10MG DAILY
     Route: 065

REACTIONS (2)
  - Drug reaction with eosinophilia and systemic symptoms [Recovering/Resolving]
  - Drug interaction [Recovering/Resolving]
